APPROVED DRUG PRODUCT: CASPOFUNGIN ACETATE
Active Ingredient: CASPOFUNGIN ACETATE
Strength: 70MG/VIAL
Dosage Form/Route: POWDER;INTRAVENOUS
Application: A211263 | Product #002 | TE Code: AP
Applicant: AREVA PHARMACEUTICALS INC
Approved: Oct 1, 2021 | RLD: No | RS: No | Type: RX